FAERS Safety Report 21053465 (Version 1)
Quarter: 2022Q3

REPORT INFORMATION
  Report Type: Report from Study
  Country: US (occurrence: US)
  Receive Date: 20220707
  Receipt Date: 20220707
  Transmission Date: 20221026
  Serious: Yes (Other)
  Sender: FDA-Public Use
  Company Number: US-JNJFOC-20220662983

PATIENT
  Age: 59 Year
  Sex: Female

DRUGS (1)
  1. SPRAVATO [Suspect]
     Active Substance: ESKETAMINE
     Indication: Suicidal ideation
     Dosage: LAST ADMINISTERED DOSE 27-JUN-2022
     Dates: start: 20220622, end: 20220627

REACTIONS (3)
  - Suicidal ideation [Recovering/Resolving]
  - Major depression [Recovering/Resolving]
  - Product availability issue [Unknown]

NARRATIVE: CASE EVENT DATE: 20220601
